FAERS Safety Report 19084954 (Version 1)
Quarter: 2021Q2

REPORT INFORMATION
  Report Type: Spontaneous
  Country: CZ (occurrence: CZ)
  Receive Date: 20210401
  Receipt Date: 20210401
  Transmission Date: 20210717
  Serious: Yes (Hospitalization, Other)
  Sender: FDA-Public Use
  Company Number: CZ-MYLANLABS-2021M1018326

PATIENT
  Age: 70 Year
  Sex: Male
  Weight: 80 kg

DRUGS (9)
  1. FUROSEMIDE. [Concomitant]
     Active Substance: FUROSEMIDE
     Dosage: UNK
  2. AMLODIPINE W/RAMIPRIL [Concomitant]
     Active Substance: AMLODIPINE\RAMIPRIL
     Dosage: 10MG/5MG, QD
  3. CLINDAMYCIN. [Concomitant]
     Active Substance: CLINDAMYCIN
     Dosage: UNK
  4. ESCIN [Concomitant]
     Active Substance: ESCIN
     Dosage: UNK
  5. ESCITALOPRAM [Concomitant]
     Active Substance: ESCITALOPRAM OXALATE
     Dosage: 10 MILLIGRAM, QD
  6. METAMIZOLE [Concomitant]
     Active Substance: METAMIZOLE
     Dosage: UNK
  7. ROSUVASTATIN. [Concomitant]
     Active Substance: ROSUVASTATIN
     Dosage: 20 MILLIGRAM, QD
  8. PARACETAMOL [Concomitant]
     Active Substance: ACETAMINOPHEN
     Dosage: UNK
  9. GLIMEPIRIDE. [Suspect]
     Active Substance: GLIMEPIRIDE
     Indication: DIABETES MELLITUS
     Dosage: 2 MILLIGRAM, QD
     Route: 048

REACTIONS (3)
  - Delirium [Unknown]
  - Hypoglycaemia [Unknown]
  - Limb injury [Unknown]
